FAERS Safety Report 21927241 (Version 1)
Quarter: 2023Q1

REPORT INFORMATION
  Report Type: Spontaneous
  Country: GB (occurrence: GB)
  Receive Date: 20230130
  Receipt Date: 20230130
  Transmission Date: 20230418
  Serious: Yes (Death, Hospitalization, Other)
  Sender: FDA-Public Use
  Company Number: GB-EXELIXIS-CABO-23059620

PATIENT
  Age: 57 Year
  Sex: Male

DRUGS (5)
  1. EVEROLIMUS [Suspect]
     Active Substance: EVEROLIMUS
     Indication: Papillary renal cell carcinoma
     Dosage: UNK (START DATE JUL-2021 AND STOP DATE NOV-2021)
     Route: 065
  2. LENVATINIB [Suspect]
     Active Substance: LENVATINIB
     Indication: Papillary renal cell carcinoma
     Dosage: UNK (START DATE:JUL-2021)
     Route: 065
  3. CABOMETYX [Suspect]
     Active Substance: CABOZANTINIB S-MALATE
     Indication: Papillary renal cell carcinoma
     Dosage: 60 MILLIGRAM (START DATE: 03-APR-2020)
     Route: 048
  4. CABOMETYX [Suspect]
     Active Substance: CABOZANTINIB S-MALATE
     Dosage: 40 MILLIGRAM (START DATE:NOV-2020)
     Route: 048
  5. CABOMETYX [Suspect]
     Active Substance: CABOZANTINIB S-MALATE
     Dosage: 20 MILLIGRAM (START DATE: APR-2021)
     Route: 048

REACTIONS (15)
  - Death [Fatal]
  - Lymphatic fistula [Unknown]
  - Post procedural complication [Unknown]
  - Malignant neoplasm progression [Unknown]
  - Metastases to liver [Unknown]
  - Lymphadenopathy [Unknown]
  - Oropharyngeal pain [Unknown]
  - Balance disorder [Unknown]
  - Abdominal discomfort [Unknown]
  - Hair colour changes [Unknown]
  - Dysphonia [Not Recovered/Not Resolved]
  - Dysphagia [Recovering/Resolving]
  - Mucosal inflammation [Recovering/Resolving]
  - Cough [Unknown]
  - Nausea [Unknown]

NARRATIVE: CASE EVENT DATE: 20201101
